FAERS Safety Report 17848987 (Version 1)
Quarter: 2020Q2

REPORT INFORMATION
  Report Type: Spontaneous
  Country: ES (occurrence: ES)
  Receive Date: 20200602
  Receipt Date: 20200602
  Transmission Date: 20200714
  Serious: Yes (Other)
  Sender: FDA-Public Use
  Company Number: ES-SA-2020SA138605

PATIENT

DRUGS (5)
  1. TOCILIZUMAB. [Suspect]
     Active Substance: TOCILIZUMAB
     Indication: COVID-19
     Dosage: 600 MG, QD
     Route: 042
     Dates: start: 20200401, end: 20200401
  2. HYDROXYCHLOROQUINE [Suspect]
     Active Substance: HYDROXYCHLOROQUINE
     Indication: PRODUCT USE IN UNAPPROVED INDICATION
  3. IVERMECTIN. [Suspect]
     Active Substance: IVERMECTIN
     Indication: STRONGYLOIDIASIS
     Dosage: 12 MG, 1X
     Route: 048
     Dates: start: 20200401, end: 20200401
  4. HYDROXYCHLOROQUINE [Suspect]
     Active Substance: HYDROXYCHLOROQUINE
     Indication: COVID-19 PNEUMONIA
     Dosage: 400 MG, QD
     Route: 048
     Dates: start: 20200330, end: 20200404
  5. ENOXAPARIN SODIUM. [Suspect]
     Active Substance: ENOXAPARIN SODIUM
     Indication: THROMBOSIS PROPHYLAXIS
     Dosage: 40 MG, QD
     Route: 042
     Dates: start: 20200401, end: 20200507

REACTIONS (2)
  - Hepatitis [Recovered/Resolved]
  - Off label use [Unknown]

NARRATIVE: CASE EVENT DATE: 20200330
